FAERS Safety Report 8490998-7 (Version None)
Quarter: 2012Q2

REPORT INFORMATION
  Report Type: 
  Country: None (occurrence: None)
  Receive Date: 20120622
  Receipt Date: 20120612
  Transmission Date: 20120825
  Serious: Yes (Other)
  Sender: FDA-Public Use
  Company Number: 2012032617

PATIENT
  Age: 36 Year
  Sex: Female

DRUGS (2)
  1. PRIVIGEN [Suspect]
     Indication: STEVENS-JOHNSON SYNDROME
     Dosage: (1 G/KG/DAY INTRAVENOUS (NOT OTHERWISE SPECIFIED)
     Route: 042
  2. NYQUIL (MEDINITE) [Concomitant]

REACTIONS (3)
  - BLOOD LACTATE DEHYDROGENASE INCREASED [None]
  - HAEMOGLOBIN DECREASED [None]
  - HAEMOLYSIS [None]
